FAERS Safety Report 7478492-3 (Version None)
Quarter: 2011Q2

REPORT INFORMATION
  Report Type: 
  Country: None (occurrence: None)
  Receive Date: 20110513
  Receipt Date: 20110506
  Transmission Date: 20111010
  Serious: Yes (Death)
  Sender: FDA-Public Use
  Company Number: US-PURDUE-USA-2011-0067602

PATIENT
  Age: 2 Month
  Sex: Female

DRUGS (2)
  1. PERCOCET [Suspect]
     Indication: DRUG EXPOSURE VIA BREAST MILK
  2. OXYCONTIN [Suspect]
     Indication: DRUG EXPOSURE VIA BREAST MILK

REACTIONS (1)
  - SUDDEN INFANT DEATH SYNDROME [None]
